FAERS Safety Report 8734371 (Version 2)
Quarter: 2015Q2

REPORT INFORMATION
  Report Type: Report from Study
  Country: US (occurrence: US)
  Receive Date: 20120821
  Receipt Date: 20150629
  Transmission Date: 20150821
  Serious: Yes (Hospitalization, Other)
  Sender: FDA-Public Use
  Company Number: US-ROCHE-1100862

PATIENT
  Age: 50 Year
  Sex: Male

DRUGS (5)
  1. ACTIVASE [Suspect]
     Active Substance: ALTEPLASE
     Indication: ACUTE MYOCARDIAL INFARCTION
     Route: 042
  2. ZANTAC [Concomitant]
     Active Substance: RANITIDINE HYDROCHLORIDE
     Route: 065
  3. ASA [Concomitant]
     Active Substance: ASPIRIN
     Route: 065
  4. LOPRESSOR [Concomitant]
     Active Substance: METOPROLOL TARTRATE
     Route: 048
  5. LANOXIN [Concomitant]
     Active Substance: DIGOXIN
     Route: 048

REACTIONS (9)
  - Hypokalaemia [Unknown]
  - Chest discomfort [Recovered/Resolved]
  - Vascular resistance systemic decreased [Unknown]
  - Pneumonitis [Unknown]
  - Pneumonia aspiration [Recovered/Resolved]
  - Atrioventricular block second degree [Unknown]
  - Sepsis [Unknown]
  - Respiratory failure [Recovered/Resolved]
  - Cardiac output increased [Unknown]
